FAERS Safety Report 19544752 (Version 4)
Quarter: 2022Q1

REPORT INFORMATION
  Report Type: Spontaneous
  Country: US (occurrence: US)
  Receive Date: 20210713
  Receipt Date: 20220307
  Transmission Date: 20220423
  Serious: Yes (Hospitalization, Other)
  Sender: FDA-Public Use
  Company Number: US-PFIZER INC-2021026263

PATIENT
  Age: 58 Year
  Sex: Female
  Weight: 108.86 kg

DRUGS (1)
  1. RELPAX [Suspect]
     Active Substance: ELETRIPTAN HYDROBROMIDE
     Indication: Migraine
     Dosage: 40 MG, AS NEEDED (TAKE 1 TABLET BY MOUTH, CAN REPEAT IN 2 HOURS/MAX QTY 2 TABS IN 24 HR PERIOD)
     Route: 048

REACTIONS (10)
  - Infection [Unknown]
  - Pyrexia [Unknown]
  - Type 2 diabetes mellitus [Not Recovered/Not Resolved]
  - Large intestine infection [Unknown]
  - Dehydration [Unknown]
  - Sudden onset of sleep [Unknown]
  - Loss of personal independence in daily activities [Unknown]
  - Road traffic accident [Unknown]
  - Bradyphrenia [Unknown]
  - Weight decreased [Unknown]

NARRATIVE: CASE EVENT DATE: 20200101
